FAERS Safety Report 4501810-2 (Version None)
Quarter: 2004Q4

REPORT INFORMATION
  Report Type: 
  Country: None (occurrence: None)
  Receive Date: 20041115
  Receipt Date: 20041115
  Transmission Date: 20050328
  Serious: Yes (Hospitalization)
  Sender: FDA-Public Use
  Company Number: None

PATIENT
  Age: 77 Year
  Sex: Male
  Weight: 83 kg

DRUGS (7)
  1. LASIX [Suspect]
  2. ALDACTONE [Suspect]
  3. METOPROLOL [Concomitant]
  4. POTASSIUM [Concomitant]
  5. SALMETEROL [Concomitant]
  6. SIMVASTATIN [Concomitant]
  7. COUMADIN [Concomitant]

REACTIONS (2)
  - ORTHOSTATIC HYPOTENSION [None]
  - SYNCOPE [None]
